FAERS Safety Report 4588875-7 (Version None)
Quarter: 2005Q1

REPORT INFORMATION
  Report Type: 
  Country: None (occurrence: None)
  Receive Date: 20050216
  Receipt Date: 20050208
  Transmission Date: 20050727
  Serious: Yes (Hospitalization, Other)
  Sender: FDA-Public Use
  Company Number: 2004091913

PATIENT
  Age: 70 Year
  Sex: Female

DRUGS (1)
  1. LIPITOR [Suspect]
     Indication: ILL-DEFINED DISORDER

REACTIONS (12)
  - ARTHRITIS [None]
  - ASTHENIA [None]
  - BLOOD DISORDER [None]
  - BONE PAIN [None]
  - HYPERHIDROSIS [None]
  - JAUNDICE [None]
  - LIVER DISORDER [None]
  - MALAISE [None]
  - MYALGIA [None]
  - ORAL INTAKE REDUCED [None]
  - PAIN [None]
  - VITREOUS FLOATERS [None]
